FAERS Safety Report 7271186-9 (Version None)
Quarter: 2011Q1

REPORT INFORMATION
  Report Type: 
  Country: None (occurrence: None)
  Receive Date: 20110202
  Receipt Date: 20110122
  Transmission Date: 20110831
  Serious: No
  Sender: FDA-Public Use
  Company Number: US-PFIZER INC-2011021522

PATIENT
  Sex: Female

DRUGS (3)
  1. ETANERCEPT [Concomitant]
     Indication: RHEUMATOID ARTHRITIS
     Dosage: 50 MG, WEEKLY
     Dates: start: 20100823, end: 20110110
  2. HYDROXYCHLOROQUINE [Suspect]
  3. CELEBREX [Suspect]

REACTIONS (1)
  - DRUG HYPERSENSITIVITY [None]
